FAERS Safety Report 8273199-7 (Version None)
Quarter: 2012Q2

REPORT INFORMATION
  Report Type: 
  Country: None (occurrence: None)
  Receive Date: 20120411
  Receipt Date: 20120406
  Transmission Date: 20120825
  Serious: Yes (Death)
  Sender: FDA-Public Use
  Company Number: US-CELGENEUS-163-21880-12040766

PATIENT
  Sex: Male

DRUGS (7)
  1. DEXAMETHASONE [Concomitant]
     Route: 065
  2. ASPIRIN [Concomitant]
     Route: 065
  3. REVLIMID [Suspect]
     Indication: MULTIPLE MYELOMA
     Dosage: 25 MILLIGRAM
     Route: 048
     Dates: start: 20070901, end: 20080101
  4. REVLIMID [Suspect]
     Dosage: 20 MILLIGRAM
     Route: 048
     Dates: start: 20110701
  5. PAXIL [Concomitant]
     Route: 065
  6. REVLIMID [Suspect]
     Dosage: 25-10MG
     Route: 048
     Dates: start: 20110401, end: 20110101
  7. ALLOPURINOL [Concomitant]
     Route: 065

REACTIONS (1)
  - DEATH [None]
